FAERS Safety Report 5789195-5 (Version None)
Quarter: 2008Q2

REPORT INFORMATION
  Report Type: 
  Country: None (occurrence: None)
  Receive Date: 20080626
  Receipt Date: 20071121
  Transmission Date: 20081010
  Serious: No
  Sender: FDA-Public Use
  Company Number: US-ASTRAZENECA-2007UW26924

PATIENT
  Age: 62 Year
  Sex: Female
  Weight: 54.4 kg

DRUGS (11)
  1. PULMICORT FLEXHALER [Suspect]
     Indication: ASTHMA
     Route: 055
  2. SINGULAIR [Concomitant]
  3. RHINOCORT [Concomitant]
  4. SPIRIVA [Concomitant]
  5. PLAVIX [Concomitant]
  6. STEVA [Concomitant]
  7. AVAPRO [Concomitant]
  8. VYTORIN [Concomitant]
  9. NEXIUM [Concomitant]
  10. ASPIRIN [Concomitant]
  11. MAXAIR [Concomitant]

REACTIONS (1)
  - ASTHMA [None]
